FAERS Safety Report 17538895 (Version 1)
Quarter: 2020Q1

REPORT INFORMATION
  Report Type: Spontaneous
  Country: US (occurrence: US)
  Receive Date: 20200313
  Receipt Date: 20200313
  Transmission Date: 20200409
  Serious: No
  Sender: FDA-Public Use
  Company Number: US-JNJFOC-20200315537

PATIENT
  Age: 23 Year
  Sex: Female

DRUGS (2)
  1. RISPERDAL CONSTA [Suspect]
     Active Substance: RISPERIDONE
     Indication: PRODUCT USED FOR UNKNOWN INDICATION
     Route: 030
     Dates: start: 201910, end: 201912
  2. RISPERDAL CONSTA [Suspect]
     Active Substance: RISPERIDONE
     Route: 030
     Dates: start: 202001

REACTIONS (5)
  - Inappropriate schedule of product administration [Unknown]
  - Product complaint [Unknown]
  - Needle issue [Unknown]
  - Intentional product use issue [Unknown]
  - Product leakage [Unknown]

NARRATIVE: CASE EVENT DATE: 201912
